FAERS Safety Report 25322997 (Version 1)
Quarter: 2025Q2

REPORT INFORMATION
  Report Type: Spontaneous
  Country: FR (occurrence: FR)
  Receive Date: 20250516
  Receipt Date: 20250516
  Transmission Date: 20250716
  Serious: Yes (Other)
  Sender: ROCHE
  Company Number: FR-ROCHE-10000285330

PATIENT
  Age: 29 Year

DRUGS (4)
  1. RITUXIMAB [Suspect]
     Active Substance: RITUXIMAB
     Indication: Pemphigus
     Route: 042
  2. PREDNISONE [Concomitant]
     Active Substance: PREDNISONE
  3. BELIMUMAB [Concomitant]
     Active Substance: BELIMUMAB
  4. DARATUMUMAB [Concomitant]
     Active Substance: DARATUMUMAB

REACTIONS (2)
  - Off label use [Unknown]
  - Drug specific antibody present [Unknown]
